FAERS Safety Report 6574212-5 (Version None)
Quarter: 2010Q1

REPORT INFORMATION
  Report Type: 
  Country: None (occurrence: None)
  Receive Date: 20100201
  Receipt Date: 20100114
  Transmission Date: 20100710
  Serious: Yes (Hospitalization)
  Sender: FDA-Public Use
  Company Number: 1063

PATIENT
  Age: 73 Year
  Sex: Female

DRUGS (4)
  1. FLAVOXATE HYDROCHLORIDE [Suspect]
     Dates: start: 20070905
  2. PROPYPHENAZONE [Suspect]
  3. CLOPIDOGREL [Concomitant]
  4. ASPIRIN [Concomitant]

REACTIONS (5)
  - ACUTE CORONARY SYNDROME [None]
  - AKINESIA [None]
  - HYPERSENSITIVITY [None]
  - IN-STENT CORONARY ARTERY RESTENOSIS [None]
  - VENTRICULAR HYPOKINESIA [None]
